FAERS Safety Report 18000179 (Version 1)
Quarter: 2020Q3

REPORT INFORMATION
  Report Type: Spontaneous
  Country: AR (occurrence: AR)
  Receive Date: 20200709
  Receipt Date: 20200709
  Transmission Date: 20201103
  Serious: Yes (Other)
  Sender: FDA-Public Use
  Company Number: AR-PFIZER INC-2020262615

PATIENT
  Age: 74 Year
  Sex: Female

DRUGS (3)
  1. OXA B12 [BETAMETHASONE;CYANOCOBALAMIN;DICLOFENAC POTASSIUM] [Concomitant]
     Dosage: UNK
     Dates: start: 2018
  2. XELJANZ [Suspect]
     Active Substance: TOFACITINIB CITRATE
     Indication: RHEUMATOID ARTHRITIS
     Dosage: 5 MG, DAILY
     Dates: start: 20150710
  3. XELJANZ [Suspect]
     Active Substance: TOFACITINIB CITRATE
     Dosage: UNK, WHEN THE BODY NEEDED IT

REACTIONS (3)
  - Intentional product misuse [Unknown]
  - Fall [Unknown]
  - Hip fracture [Unknown]
